FAERS Safety Report 7790764-1 (Version None)
Quarter: 2011Q3

REPORT INFORMATION
  Report Type: 
  Country: None (occurrence: None)
  Receive Date: 20110930
  Receipt Date: 20110826
  Transmission Date: 20111222
  Serious: Yes (Other)
  Sender: FDA-Public Use
  Company Number: PHHY2011JP74875

PATIENT
  Age: 56 Year
  Sex: Female

DRUGS (4)
  1. BETAMETHASONE [Suspect]
     Indication: OVERLAP SYNDROME
     Dosage: UNK UKN, UNK
     Route: 048
  2. BETAMETHASONE [Suspect]
     Dosage: UNK UKN, UNK
  3. KENACORT-A OPHTHALMIC OINTMENT [Concomitant]
     Dosage: UNK UKN, UNK
  4. NEORAL [Suspect]
     Indication: DERMATOMYOSITIS
     Dosage: 50 TO 100 MG DAILY
     Route: 048
     Dates: start: 20071001, end: 20110301

REACTIONS (6)
  - MASS [None]
  - BURSA DISORDER [None]
  - SECRETION DISCHARGE [None]
  - LUNG NEOPLASM MALIGNANT [None]
  - DERMAL CYST [None]
  - CYST ASPIRATION [None]
